FAERS Safety Report 4387318-6 (Version None)
Quarter: 2004Q2

REPORT INFORMATION
  Report Type: 
  Country: None (occurrence: None)
  Receive Date: 20040623
  Receipt Date: 20040604
  Transmission Date: 20050107
  Serious: Yes (Other)
  Sender: FDA-Public Use
  Company Number: US_0405103247

PATIENT
  Age: 82 Year
  Sex: Female

DRUGS (6)
  1. EVISTA [Suspect]
     Indication: OSTEOPOROSIS
     Dosage: 60 MG/1 DAY
  2. MIACALCIN [Concomitant]
  3. SYNTHROID [Concomitant]
  4. CALCIUM CARBONATE [Concomitant]
  5. AVANDIA [Concomitant]
  6. AXID [Concomitant]

REACTIONS (4)
  - BONE DENSITY DECREASED [None]
  - DRUG INEFFECTIVE [None]
  - LUMBAR VERTEBRAL FRACTURE [None]
  - SPINAL COMPRESSION FRACTURE [None]
